FAERS Safety Report 5069612-9 (Version None)
Quarter: 2006Q3

REPORT INFORMATION
  Report Type: 
  Country: None (occurrence: None)
  Receive Date: 20060714
  Receipt Date: 20060320
  Transmission Date: 20061208
  Serious: No
  Sender: FDA-Public Use
  Company Number: 2006SP001287

PATIENT
  Age: 74 Year
  Sex: Female
  Weight: 54.4316 kg

DRUGS (3)
  1. LUNESTA [Suspect]
     Indication: INSOMNIA
     Dosage: 2 MG;QD;ORAL
     Route: 048
     Dates: start: 20060228, end: 20060301
  2. LUNESTA [Suspect]
     Indication: INSOMNIA
     Dosage: 2 MG;QD;ORAL
     Route: 048
     Dates: start: 20060301, end: 20060301
  3. RESTORIL [Concomitant]

REACTIONS (1)
  - INSOMNIA [None]
